FAERS Safety Report 8609902 (Version 2)
Quarter: 2013Q2

REPORT INFORMATION
  Report Type: Spontaneous
  Country: US (occurrence: US)
  Receive Date: 20120612
  Receipt Date: 20130509
  Transmission Date: 20140414
  Serious: No
  Sender: FDA-Public Use
  Company Number: US-PFIZER INC-2012139968

PATIENT
  Age: 55 Year
  Sex: Male
  Weight: 132 kg

DRUGS (3)
  1. CELEBREX [Suspect]
     Dosage: UNK
  2. NEURONTIN [Suspect]
     Indication: PAROSMIA
     Dosage: 800 MG DAILY
     Dates: start: 200007
  3. DIAZEPAM [Concomitant]
     Dosage: UNK, AS NEEDED

REACTIONS (4)
  - Off label use [Unknown]
  - Local swelling [Unknown]
  - Skin lesion [Unknown]
  - Back pain [Not Recovered/Not Resolved]
